FAERS Safety Report 19068511 (Version 1)
Quarter: 2021Q1

REPORT INFORMATION
  Report Type: Spontaneous
  Country: US (occurrence: US)
  Receive Date: 20210329
  Receipt Date: 20210329
  Transmission Date: 20210420
  Serious: No
  Sender: FDA-Public Use
  Company Number: US-PFIZER INC-2021202689

PATIENT
  Age: 65 Year
  Sex: Female
  Weight: 54.88 kg

DRUGS (4)
  1. CIPROFLOXACIN. [Suspect]
     Active Substance: CIPROFLOXACIN
     Dosage: UNK
  2. CBD OIL [Concomitant]
     Active Substance: CANNABIDIOL\HERBALS
  3. ZEAXANTHIN [Concomitant]
     Active Substance: ZEAXANTHIN
     Dosage: UNK
  4. LUTEIN [Concomitant]
     Active Substance: LUTEIN
     Dosage: UNK

REACTIONS (1)
  - Eye disorder [Unknown]
